FAERS Safety Report 26084492 (Version 1)
Quarter: 2025Q4

REPORT INFORMATION
  Report Type: Spontaneous
  Country: EU (occurrence: EU)
  Receive Date: 20251124
  Receipt Date: 20251124
  Transmission Date: 20260118
  Serious: Yes (Other)
  Sender: NOVARTIS
  Company Number: EU-002147023-NVSC2025RO177442

PATIENT
  Age: 38 Year
  Sex: Female

DRUGS (4)
  1. KISQALI [Suspect]
     Active Substance: RIBOCICLIB SUCCINATE
     Indication: HER2 positive breast cancer
     Dosage: 400 MG, QD,DAILY, 21 DAYS WITH 7 DAYS BREAK (CYCLE 1)
     Route: 065
     Dates: start: 20250905, end: 20251031
  2. KISQALI [Suspect]
     Active Substance: RIBOCICLIB SUCCINATE
     Dosage: 400 MG, QD (CYCLE 2)
     Route: 065
     Dates: start: 20251002
  3. LETROZOLE [Concomitant]
     Active Substance: LETROZOLE
     Indication: HER2 positive breast cancer
     Dosage: 2.5 MG, QD
     Route: 048
     Dates: start: 202505
  4. GOSERELIN [Concomitant]
     Active Substance: GOSERELIN
     Indication: HER2 positive breast cancer
     Dosage: 3.6 MG, 28 D (AT 28 DAYS)
     Route: 058
     Dates: start: 202505

REACTIONS (2)
  - Hepatic cytolysis [Recovering/Resolving]
  - Off label use [Unknown]

NARRATIVE: CASE EVENT DATE: 20251031
